FAERS Safety Report 6965122-X (Version None)
Quarter: 2010Q3

REPORT INFORMATION
  Report Type: 
  Country: None (occurrence: None)
  Receive Date: 20100903
  Receipt Date: 20100827
  Transmission Date: 20110219
  Serious: Yes (Hospitalization, Other)
  Sender: FDA-Public Use
  Company Number: US-ABBOTT-10P-163-0664369-00

PATIENT
  Sex: Female
  Weight: 72.64 kg

DRUGS (16)
  1. HUMIRA [Suspect]
     Indication: RHEUMATOID ARTHRITIS
     Dates: start: 20080101
  2. METHOTREXATE [Concomitant]
     Indication: RHEUMATOID ARTHRITIS
  3. OMEPRAZOLE [Concomitant]
     Indication: GASTROOESOPHAGEAL REFLUX DISEASE
  4. ASPIRIN [Concomitant]
     Indication: CARDIOVASCULAR EVENT PROPHYLAXIS
  5. LEXAPRO [Concomitant]
     Indication: ARTHRITIS
  6. PENTASA [Concomitant]
     Indication: COLITIS
  7. GLYCOPYROL [Concomitant]
     Indication: COLITIS
  8. GLUCOSAMINE CHONDROITIN [Concomitant]
     Indication: ARTHRITIS
  9. MULTIPLE VITAMINS [Concomitant]
     Indication: VITAMIN SUPPLEMENTATION
  10. TRIAMTERINE HCT [Concomitant]
     Indication: OEDEMA PERIPHERAL
  11. FOLIC ACID [Concomitant]
     Indication: VITAMIN SUPPLEMENTATION
  12. FISH OIL [Concomitant]
     Indication: SUPPLEMENTATION THERAPY
  13. CELEBREX [Concomitant]
     Indication: ARTHRITIS
  14. CALCIUM [Concomitant]
     Indication: MINERAL SUPPLEMENTATION
  15. SIMVASTATIN [Concomitant]
     Indication: HYPERLIPIDAEMIA
  16. HYDROCODONE [Concomitant]
     Indication: ARTHRALGIA

REACTIONS (8)
  - ATRIAL FIBRILLATION [None]
  - CHEST PAIN [None]
  - DEVICE OCCLUSION [None]
  - DYSURIA [None]
  - KIDNEY INFECTION [None]
  - PAIN IN JAW [None]
  - POLLAKIURIA [None]
  - WRONG TECHNIQUE IN DRUG USAGE PROCESS [None]
